FAERS Safety Report 5368606-3 (Version None)
Quarter: 2007Q2

REPORT INFORMATION
  Report Type: 
  Country: None (occurrence: None)
  Receive Date: 20070625
  Receipt Date: 20070614
  Transmission Date: 20071010
  Serious: Yes (Death, Hospitalization)
  Sender: FDA-Public Use
  Company Number: BR-JNJFOC-20070604680

PATIENT
  Sex: Male

DRUGS (1)
  1. TRAMADOL HCL [Suspect]
     Indication: PAIN
     Route: 065

REACTIONS (2)
  - NEOPLASM PROGRESSION [None]
  - RENAL FAILURE [None]
